FAERS Safety Report 6006095-6 (Version None)
Quarter: 2008Q4

REPORT INFORMATION
  Report Type: 
  Country: None (occurrence: None)
  Receive Date: 20081215
  Receipt Date: 20081204
  Transmission Date: 20090506
  Serious: Yes (Disabling, Other)
  Sender: FDA-Public Use
  Company Number: GXKR2008GB11576

PATIENT
  Age: 85 Year
  Sex: Male

DRUGS (10)
  1. SIMVASTATIN [Suspect]
     Dosage: 40 MG, ORAL
     Route: 048
     Dates: end: 20081101
  2. VERAPAMIL [Suspect]
     Indication: ATRIAL FIBRILLATION
     Dosage: 40 MG, TID, ORAL
     Route: 048
     Dates: start: 20081001
  3. ACETYLSALICYLIC ACID SRT [Concomitant]
  4. BRIMONIDINE (BRIMONIDINE) [Concomitant]
  5. CODEINE PHOSPHATE AND ACETAMINOPHEN [Concomitant]
  6. FUROSEMIDE [Concomitant]
  7. LISINOPRIL [Concomitant]
  8. QVAR [Concomitant]
  9. SALBUTAMOL (SALBUTAMOL) [Concomitant]
  10. SALMETEROL (SALMETEROL) [Concomitant]

REACTIONS (3)
  - BLOOD CREATINE PHOSPHOKINASE INCREASED [None]
  - HYPOKINESIA [None]
  - MYOSITIS [None]
